FAERS Safety Report 9692617 (Version 1)
Quarter: 2013Q4

REPORT INFORMATION
  Report Type: Spontaneous
  Country: US (occurrence: US)
  Receive Date: 20131118
  Receipt Date: 20131118
  Transmission Date: 20140711
  Serious: No
  Sender: FDA-Public Use
  Company Number: PHEH2013US023363

PATIENT
  Sex: Female

DRUGS (11)
  1. TASIGNA [Suspect]
     Dosage: 150 MG, TID
     Route: 048
  2. LISINOPRIL [Concomitant]
  3. WELLBUTRIN [Concomitant]
  4. CYMBALTA [Concomitant]
  5. LORAZEPAM [Concomitant]
  6. NEXIUM//ESOMEPRAZOLE SODIUM [Concomitant]
  7. KYTRIL [Concomitant]
  8. ATOROL [Concomitant]
  9. HYDROCHLOROTHIAZIDE [Concomitant]
  10. DEMEROL [Concomitant]
  11. OXYMORPHONE HCL [Concomitant]

REACTIONS (5)
  - Nausea [Unknown]
  - Fatigue [Unknown]
  - Muscle spasms [Unknown]
  - Gastrooesophageal reflux disease [Unknown]
  - Arthralgia [Unknown]
